FAERS Safety Report 6185373-4 (Version None)
Quarter: 2009Q2

REPORT INFORMATION
  Report Type: 
  Country: None (occurrence: None)
  Receive Date: 20090511
  Receipt Date: 20090508
  Transmission Date: 20091009
  Serious: Yes (Life-Threatening, Hospitalization, Other)
  Sender: FDA-Public Use
  Company Number: DK-ROXANE LABORATORIES, INC.-2009-DE-02508GD

PATIENT
  Age: 70 Year
  Sex: Male

DRUGS (3)
  1. MORPHINE [Suspect]
     Route: 048
  2. OXAZEPAM [Suspect]
     Route: 048
  3. NITRAZEPAM [Suspect]
     Route: 048

REACTIONS (8)
  - APNOEA [None]
  - DRUG ABUSE [None]
  - INTENTIONAL OVERDOSE [None]
  - LOSS OF CONSCIOUSNESS [None]
  - PNEUMONIA ASPIRATION [None]
  - RESPIRATORY ACIDOSIS [None]
  - RESPIRATORY FAILURE [None]
  - SUICIDE ATTEMPT [None]
